FAERS Safety Report 16079237 (Version 1)
Quarter: 2019Q1

REPORT INFORMATION
  Report Type: Spontaneous
  Country: IL (occurrence: IL)
  Receive Date: 20190315
  Receipt Date: 20190315
  Transmission Date: 20190418
  Serious: Yes (Hospitalization, Other)
  Sender: FDA-Public Use
  Company Number: IL-009507513-1903ISR005637

PATIENT
  Age: 60 Year
  Sex: Male

DRUGS (4)
  1. KEYTRUDA [Suspect]
     Active Substance: PEMBROLIZUMAB
     Dosage: 2ND CYCLE
     Dates: start: 2019, end: 2019
  2. ALIMTA [Suspect]
     Active Substance: PEMETREXED DISODIUM
     Dosage: CYCLICAL
     Dates: start: 201901
  3. KEYTRUDA [Suspect]
     Active Substance: PEMBROLIZUMAB
     Dosage: 1ST CYCLE
     Dates: start: 2019, end: 2019
  4. CARBOPLATIN. [Suspect]
     Active Substance: CARBOPLATIN
     Dosage: CYCLICAL
     Dates: start: 201901

REACTIONS (2)
  - Pneumocystis jirovecii pneumonia [Unknown]
  - Pneumonitis [Unknown]

NARRATIVE: CASE EVENT DATE: 2019
